FAERS Safety Report 9114811 (Version 1)
Quarter: 2013Q1

REPORT INFORMATION
  Report Type: Spontaneous
  Country: US (occurrence: None)
  Receive Date: 20130128
  Receipt Date: 20130128
  Transmission Date: 20140127
  Serious: Yes (Hospitalization)
  Sender: FDA-Public Use
  Company Number: US-010638

PATIENT
  Sex: Male

DRUGS (16)
  1. DEGARELIX [Suspect]
     Indication: PROSTATE CANCER
     Dates: end: 20120920
  2. DASATINIB [Suspect]
     Indication: PROSTATE CANCER
     Dates: start: 20120105
  3. ABIRATERONE ACETATE [Suspect]
     Indication: PROSTATE CANCER
     Dates: start: 20110915
  4. BISOPROLOL [Suspect]
     Indication: PROSTATE CANCER
     Route: 048
  5. VITAMINS [Suspect]
     Route: 048
  6. ZOMETA (NOT SPECIFIED) [Suspect]
     Dosage: 4 MG 1/3 MONTH INTRAVENOUS (NOT OTHERWISE SPECIFIED)
  7. ALPRAZOLAM [Suspect]
     Indication: SLEEP DISORDER
  8. KLOR-CON [Suspect]
  9. TESSALON [Suspect]
  10. CLARITIN [Suspect]
  11. ASPIRIN [Suspect]
  12. OXYCODONE [Suspect]
     Indication: PAIN
     Dosage: 1 DOSAGE FORM 1/4 HOUR ORAL
  13. CARAFATE [Concomitant]
  14. METOPROLOL [Concomitant]
  15. PREDNISONE [Concomitant]
  16. REGLAN /00041901/ [Concomitant]

REACTIONS (5)
  - Pain in extremity [None]
  - Musculoskeletal pain [None]
  - Arthralgia [None]
  - Hypokalaemia [None]
  - Renal failure acute [None]
